FAERS Safety Report 6607422-9 (Version None)
Quarter: 2010Q1

REPORT INFORMATION
  Report Type: 
  Country: None (occurrence: None)
  Receive Date: 20100301
  Receipt Date: 20100217
  Transmission Date: 20100710
  Serious: Yes (Hospitalization, Other)
  Sender: FDA-Public Use
  Company Number: ES-ELI_LILLY_AND_COMPANY-ES201002006119

PATIENT
  Sex: Female
  Weight: 57 kg

DRUGS (13)
  1. GEMCITABINE HCL [Suspect]
     Indication: PANCREATIC CARCINOMA METASTATIC
     Dosage: 1000 MG/M2, WEEKLY (1/W)
     Route: 042
     Dates: start: 20091130
  2. GEMCITABINE HCL [Suspect]
     Route: 042
     Dates: start: 20091221, end: 20091221
  3. GEMCITABINE HCL [Suspect]
     Dosage: 1000 MG/M2, UNK
     Route: 042
     Dates: end: 20100125
  4. GEMCITABINE HCL [Suspect]
     Route: 042
  5. ZOFRAN [Concomitant]
     Dosage: UNK, UNK
  6. ZOFRAN [Concomitant]
     Dosage: 24 MG, DAILY (1/D)
     Dates: start: 20100101
  7. FORTECORTIN [Concomitant]
  8. PRIMPERAN /00041901/ [Concomitant]
     Dosage: UNK, UNK
  9. PRIMPERAN /00041901/ [Concomitant]
     Dosage: 30 MG, DAILY (1/D)
     Dates: start: 20100101
  10. OMEPRAZOLE [Concomitant]
  11. DEXKETOPROFEN [Concomitant]
  12. PHENYTOIN [Concomitant]
  13. VENLAFAXINE [Concomitant]

REACTIONS (1)
  - GASTRITIS [None]
